FAERS Safety Report 10080737 (Version 4)
Quarter: 2015Q1

REPORT INFORMATION
  Report Type: Spontaneous
  Country: US (occurrence: US)
  Receive Date: 20140416
  Receipt Date: 20150317
  Transmission Date: 20150720
  Serious: Yes (Hospitalization, Other)
  Sender: FDA-Public Use
  Company Number: US-BAYER-2014-055412

PATIENT
  Age: 17 Year
  Sex: Female
  Weight: 54 kg

DRUGS (4)
  1. YAZ [Suspect]
     Active Substance: DROSPIRENONE\ETHINYL ESTRADIOL
     Indication: HAEMORRHAGE
  2. MORPHINE [Concomitant]
     Active Substance: MORPHINE
  3. NORCO [Concomitant]
     Active Substance: ACETAMINOPHEN\HYDROCODONE BITARTRATE
     Indication: PAIN
  4. YAZ [Suspect]
     Active Substance: DROSPIRENONE\ETHINYL ESTRADIOL
     Indication: PREMENSTRUAL SYNDROME
     Dosage: UNK
     Dates: start: 2008

REACTIONS (12)
  - Deep vein thrombosis [Recovered/Resolved]
  - Thrombophlebitis superficial [None]
  - Pain [Recovered/Resolved]
  - Gait disturbance [None]
  - Injury [Recovered/Resolved]
  - Product use issue [None]
  - Cerebrovascular accident [None]
  - Emotional distress [None]
  - Pulmonary embolism [Recovered/Resolved]
  - Thrombosis [None]
  - Pelvic venous thrombosis [None]
  - Pain [None]

NARRATIVE: CASE EVENT DATE: 2009
